FAERS Safety Report 11579204 (Version 2)
Quarter: 2015Q4

REPORT INFORMATION
  Report Type: Spontaneous
  Country: US (occurrence: US)
  Receive Date: 20150930
  Receipt Date: 20151222
  Transmission Date: 20160304
  Serious: Yes (Hospitalization)
  Sender: FDA-Public Use
  Company Number: US-PFIZER INC-2015313728

PATIENT
  Age: 84 Year
  Sex: Female

DRUGS (18)
  1. CALCIUM CITRATE [Concomitant]
     Active Substance: CALCIUM CITRATE
     Indication: ROUTINE HEALTH MAINTENANCE
     Dosage: 2000 MG, 1X/DAY
  2. ASCORBIC ACID. [Concomitant]
     Active Substance: ASCORBIC ACID
     Indication: ROUTINE HEALTH MAINTENANCE
     Dosage: 1000 MG, 1X/DAY
     Route: 048
  3. PRILOSEC [Concomitant]
     Active Substance: OMEPRAZOLE MAGNESIUM
     Indication: GASTROOESOPHAGEAL REFLUX DISEASE
     Dosage: 20 MG, 1X/DAY
     Route: 048
  4. ACIDOPHILUS [Concomitant]
     Active Substance: LACTOBACILLUS ACIDOPHILUS
     Indication: ROUTINE HEALTH MAINTENANCE
     Dosage: UNK, 1X/DAY
     Route: 048
  5. NORVASC [Concomitant]
     Active Substance: AMLODIPINE BESYLATE
     Indication: HYPERTENSION
     Dosage: 10 MG, 1X/DAY
  6. SOTALOL. [Concomitant]
     Active Substance: SOTALOL
     Indication: NODAL RHYTHM
     Dosage: 80 MG, 2X/DAY
     Route: 048
  7. HYDREA [Concomitant]
     Active Substance: HYDROXYUREA
     Indication: THROMBOCYTOSIS
     Dosage: 500 MG, 1X/DAY
  8. VITAMIN D3 [Concomitant]
     Active Substance: CHOLECALCIFEROL
     Indication: VITAMIN D DEFICIENCY
     Dosage: 4000 IU, 1X/DAY
  9. HYDROCHLOROTHIAZIDE W/TRIAMTERENE [Concomitant]
     Active Substance: HYDROCHLOROTHIAZIDE\TRIAMTERENE
     Indication: HYPERTENSION
     Dosage: UNK, 1X/DAY (25 MG-37.5 )
     Route: 048
  10. HEPARIN [Concomitant]
     Active Substance: HEPARIN SODIUM
     Dosage: UNK
  11. IBRANCE [Suspect]
     Active Substance: PALBOCICLIB
     Indication: BREAST CANCER
     Dosage: 125 MG, CYCLIC (1 DAY FOR 21 DAYS THEN 1 WEEK OFF)
     Route: 048
     Dates: start: 20150808
  12. REMERON [Concomitant]
     Active Substance: MIRTAZAPINE
     Indication: INSOMNIA
     Dosage: 30 MG, 1X/DAY
     Route: 048
  13. SOTALOL. [Concomitant]
     Active Substance: SOTALOL
     Indication: ATRIAL FIBRILLATION
  14. AMLODIPINE [Concomitant]
     Active Substance: AMLODIPINE BESYLATE
     Indication: BLOOD PRESSURE MEASUREMENT
     Dosage: UNK
  15. COZAAR [Concomitant]
     Active Substance: LOSARTAN POTASSIUM
     Indication: BLOOD PRESSURE MEASUREMENT
     Dosage: 100 MG, 1X/DAY
     Route: 048
  16. VITAMIN E-400 [Concomitant]
     Indication: ROUTINE HEALTH MAINTENANCE
     Dosage: UNK UNK, 1X/DAY
     Route: 048
  17. COZAAR [Concomitant]
     Active Substance: LOSARTAN POTASSIUM
     Indication: HYPERTENSION
  18. XARELTO [Concomitant]
     Active Substance: RIVAROXABAN
     Indication: ATRIAL FIBRILLATION
     Dosage: 15 MG, 1X/DAY (IN THE EVENING)

REACTIONS (14)
  - Dyspnoea [Unknown]
  - Fatigue [Unknown]
  - Blood creatinine increased [Unknown]
  - Acute kidney injury [Unknown]
  - Constipation [Unknown]
  - Atrial fibrillation [Unknown]
  - Blood glucose increased [Unknown]
  - Feeling abnormal [Unknown]
  - Diarrhoea [Unknown]
  - Malaise [Unknown]
  - Hypertension [Unknown]
  - Platelet count increased [Unknown]
  - Decreased appetite [Unknown]
  - Nausea [Unknown]

NARRATIVE: CASE EVENT DATE: 2015
